FAERS Safety Report 8154544-X (Version None)
Quarter: 2012Q1

REPORT INFORMATION
  Report Type: 
  Country: None (occurrence: None)
  Receive Date: 20120215
  Receipt Date: 20120208
  Transmission Date: 20120608
  Serious: Yes (Hospitalization)
  Sender: FDA-Public Use
  Company Number: 2011SP045605

PATIENT
  Age: 28 Year
  Sex: Female

DRUGS (2)
  1. SYNTHROID [Concomitant]
  2. NUVARING [Suspect]
     Indication: CONTRACEPTION
     Dates: start: 20060101, end: 20080924

REACTIONS (23)
  - GASTROENTERITIS VIRAL [None]
  - BREAST TENDERNESS [None]
  - URINARY TRACT INFECTION [None]
  - FUNGAL INFECTION [None]
  - HYPERTHYROIDISM [None]
  - MULTIPLE INJURIES [None]
  - PHARYNGEAL ERYTHEMA [None]
  - GALLBLADDER DISORDER [None]
  - WEIGHT INCREASED [None]
  - GASTRIC DISORDER [None]
  - DEHYDRATION [None]
  - BILIARY DYSKINESIA [None]
  - TYPE 2 DIABETES MELLITUS [None]
  - ABDOMINAL DISCOMFORT [None]
  - DEEP VEIN THROMBOSIS [None]
  - PULMONARY EMBOLISM [None]
  - FEMALE STERILISATION [None]
  - ENDOMETRIAL ABLATION [None]
  - OVARIAN CYST [None]
  - HEPATIC STEATOSIS [None]
  - SIMPLEX VIRUS TEST POSITIVE [None]
  - THROMBOSIS [None]
  - POST THROMBOTIC SYNDROME [None]
